FAERS Safety Report 16427203 (Version 1)
Quarter: 2019Q3

REPORT INFORMATION
  Report Type: Spontaneous
  Country: US (occurrence: US)
  Receive Date: 20190612
  Receipt Date: 20190612
  Transmission Date: 20191004
  Serious: Yes (Other)
  Sender: FDA-Public Use
  Company Number: None

PATIENT
  Age: 67 Year
  Sex: Female
  Weight: 75.33 kg

DRUGS (11)
  1. NIFEDIPINE. [Concomitant]
     Active Substance: NIFEDIPINE
  2. OCULITE [Concomitant]
  3. LISINOPRIL. [Concomitant]
     Active Substance: LISINOPRIL
  4. VITAMIN B COMPLEX [Concomitant]
     Active Substance: CYANOCOBALAMIN\DEXPANTHENOL\NIACINAMIDE\PYRIDOXINE HYDROCHLORIDE\RIBOFLAVIN 5^-PHOSPHATE SODIUM\THIAMINE HYDROCHLORIDE\VITAMIN B COMPLEX
  5. ENBREL [Suspect]
     Active Substance: ETANERCEPT
     Indication: RHEUMATOID ARTHRITIS
     Dosage: ?          QUANTITY:50 MG;OTHER FREQUENCY:EVERY WEEK;OTHER ROUTE:SUBCUTANEOUS INJECTION?
     Route: 058
     Dates: start: 20171231, end: 20190208
  6. TRAMADOL. [Concomitant]
     Active Substance: TRAMADOL
  7. LASIX [Concomitant]
     Active Substance: FUROSEMIDE
  8. ATENOLOL. [Concomitant]
     Active Substance: ATENOLOL
  9. VITOZA [Concomitant]
  10. METFORMIN [Concomitant]
     Active Substance: METFORMIN HYDROCHLORIDE
  11. VITAMIN D [Concomitant]
     Active Substance: VITAMIN D NOS

REACTIONS (2)
  - Weight increased [None]
  - Weight decreased [None]

NARRATIVE: CASE EVENT DATE: 20180118
